FAERS Safety Report 22150439 (Version 1)
Quarter: 2023Q1

REPORT INFORMATION
  Report Type: Spontaneous
  Country: US (occurrence: US)
  Receive Date: 20230329
  Receipt Date: 20230329
  Transmission Date: 20230418
  Serious: No
  Sender: FDA-Public Use
  Company Number: US-ABBVIE-4705777

PATIENT
  Age: 45 Year
  Sex: Male

DRUGS (11)
  1. VENETOCLAX [Suspect]
     Active Substance: VENETOCLAX
     Indication: Mantle cell lymphoma
     Dosage: UP TO 800 MG
     Route: 048
     Dates: start: 20221229, end: 20230212
  2. GEMCITABINE [Concomitant]
     Active Substance: GEMCITABINE
     Indication: Mantle cell lymphoma
     Dates: start: 20210315, end: 20210805
  3. PIRTOBRUTINIB [Concomitant]
     Active Substance: PIRTOBRUTINIB
     Indication: Mantle cell lymphoma
     Dates: start: 20230215
  4. OXALIPLATIN [Concomitant]
     Active Substance: OXALIPLATIN
     Indication: Mantle cell lymphoma
     Dates: start: 20210715, end: 20210810
  5. RITUXAN [Suspect]
     Active Substance: RITUXIMAB
     Indication: Mantle cell lymphoma
     Dosage: FREQUENCY TEXT: CYCLE 2
     Route: 042
     Dates: start: 20210715, end: 20210810
  6. RITUXAN [Suspect]
     Active Substance: RITUXIMAB
     Indication: Mantle cell lymphoma
     Dosage: 375 MG/M2?FREQUENCY TEXT: CYCLE 1
     Route: 042
     Dates: start: 20200512, end: 20200803
  7. RITUXAN [Suspect]
     Active Substance: RITUXIMAB
     Indication: Mantle cell lymphoma
     Dosage: FREQUENCY TEXT: CYCLE 3
     Route: 042
     Dates: start: 20220909, end: 20221107
  8. BENDAMUSTINE [Concomitant]
     Active Substance: BENDAMUSTINE
     Indication: Mantle cell lymphoma
     Dates: start: 20200512, end: 20200803
  9. CYTARABINE [Concomitant]
     Active Substance: CYTARABINE
     Indication: Mantle cell lymphoma
     Dates: start: 20220909, end: 20221107
  10. ACALABRUTINIB [Concomitant]
     Active Substance: ACALABRUTINIB
     Indication: Mantle cell lymphoma
     Dates: start: 20210313, end: 20210712
  11. DEXAMETHASONE [Concomitant]
     Active Substance: DEXAMETHASONE
     Indication: Mantle cell lymphoma
     Dates: start: 20220909, end: 20221107

REACTIONS (3)
  - Platelet count decreased [Not Recovered/Not Resolved]
  - Off label use [Recovered/Resolved]
  - Off label use [Unknown]

NARRATIVE: CASE EVENT DATE: 20190512
